FAERS Safety Report 9405726 (Version 1)
Quarter: 2013Q3

REPORT INFORMATION
  Report Type: Spontaneous
  Country: GB (occurrence: GB)
  Receive Date: 20130717
  Receipt Date: 20130717
  Transmission Date: 20140515
  Serious: Yes (Life-Threatening, Hospitalization)
  Sender: FDA-Public Use
  Company Number: GB-ACTAVIS-2013-12751

PATIENT
  Age: 34 Year
  Sex: Female

DRUGS (4)
  1. QUETIAPINE (UNKNOWN) [Suspect]
     Indication: POSTPARTUM DEPRESSION
     Dosage: 25 MG, BID
     Route: 048
  2. QUETIAPINE (UNKNOWN) [Suspect]
     Dosage: 300 MG, DAILY
     Route: 048
  3. SOTALOL [Concomitant]
     Indication: ATRIAL FIBRILLATION
     Dosage: 160 MG, TID
     Route: 065
  4. ALVERINE [Concomitant]
     Indication: PRODUCT USED FOR UNKNOWN INDICATION
     Route: 065

REACTIONS (1)
  - Electrocardiogram QT prolonged [Unknown]
